FAERS Safety Report 6867336-6 (Version None)
Quarter: 2010Q3

REPORT INFORMATION
  Report Type: 
  Country: None (occurrence: None)
  Receive Date: 20100722
  Receipt Date: 20100720
  Transmission Date: 20110219
  Serious: Yes (Disabling, Other)
  Sender: FDA-Public Use
  Company Number: US-MERCK-0603USA00628

PATIENT
  Age: 47 Year
  Sex: Female
  Weight: 54 kg

DRUGS (4)
  1. FOSAMAX [Suspect]
     Indication: OSTEOPOROSIS
     Route: 048
     Dates: start: 19950101, end: 20050620
  2. FOSAMAX [Suspect]
     Route: 048
     Dates: start: 20051210, end: 20061227
  3. FOSAMAX PLUS D [Suspect]
     Indication: OSTEOPOROSIS
     Route: 048
     Dates: start: 20061228
  4. PRINIVIL [Concomitant]
     Indication: BLOOD PRESSURE
     Route: 065
     Dates: start: 20000120

REACTIONS (14)
  - ANXIETY [None]
  - APPENDIX DISORDER [None]
  - DENTAL PROSTHESIS USER [None]
  - DRUG HYPERSENSITIVITY [None]
  - GASTRIC POLYPS [None]
  - HEAD INJURY [None]
  - NEPHROLITHIASIS [None]
  - ORAL DISORDER [None]
  - ORAL INFECTION [None]
  - OSTEONECROSIS OF JAW [None]
  - POST PROCEDURAL INFECTION [None]
  - ROAD TRAFFIC ACCIDENT [None]
  - SPINAL COLUMN INJURY [None]
  - URINARY TRACT INFECTION [None]
